FAERS Safety Report 6827892-0 (Version None)
Quarter: 2010Q3

REPORT INFORMATION
  Report Type: 
  Country: None (occurrence: None)
  Receive Date: 20100709
  Receipt Date: 20100623
  Transmission Date: 20110219
  Serious: Yes (Hospitalization)
  Sender: FDA-Public Use
  Company Number: A0863936A

PATIENT
  Age: 59 Year
  Sex: Female

DRUGS (8)
  1. AVANDIA [Suspect]
     Dosage: 8MG PER DAY
     Route: 048
     Dates: start: 20041110, end: 20070817
  2. XOPENEX [Concomitant]
  3. FLUTICASONE PROPIONATE [Concomitant]
  4. ADVAIR DISKUS 100/50 [Concomitant]
  5. GLYBURIDE [Concomitant]
  6. METOPROLOL [Concomitant]
  7. LEXAPRO [Concomitant]
  8. SIMVASTATIN [Concomitant]

REACTIONS (4)
  - ANGINA UNSTABLE [None]
  - CARDIAC FAILURE CONGESTIVE [None]
  - CORONARY ARTERY DISEASE [None]
  - MYOCARDIAL INFARCTION [None]
